FAERS Safety Report 18395375 (Version 1)
Quarter: 2020Q4

REPORT INFORMATION
  Report Type: Spontaneous
  Country: JP (occurrence: JP)
  Receive Date: 20201017
  Receipt Date: 20201017
  Transmission Date: 20210114
  Serious: Yes (Other)
  Sender: FDA-Public Use
  Company Number: JP-AMGEN-JPNSP2020165456

PATIENT
  Sex: Female

DRUGS (1)
  1. EVENITY [Suspect]
     Active Substance: ROMOSOZUMAB-AQQG
     Indication: PRODUCT USED FOR UNKNOWN INDICATION
     Dosage: 210 MILLIGRAM
     Route: 058
     Dates: start: 20200410

REACTIONS (16)
  - Feeling abnormal [Unknown]
  - Arthralgia [Unknown]
  - Neurosis [Unknown]
  - Insomnia [Unknown]
  - Arthralgia [Unknown]
  - Headache [Not Recovered/Not Resolved]
  - Dysarthria [Unknown]
  - Weight decreased [Unknown]
  - Feeding disorder [Unknown]
  - Stress [Unknown]
  - Memory impairment [Unknown]
  - Visual field defect [Unknown]
  - Tenosynovitis [Unknown]
  - Seizure [Unknown]
  - Musculoskeletal discomfort [Unknown]
  - Cognitive disorder [Unknown]

NARRATIVE: CASE EVENT DATE: 2020
